FAERS Safety Report 9293292 (Version 3)
Quarter: 2013Q3

REPORT INFORMATION
  Report Type: Spontaneous
  Country: JP (occurrence: JP)
  Receive Date: 20130516
  Receipt Date: 20130711
  Transmission Date: 20140515
  Serious: Yes (Hospitalization, Other)
  Sender: FDA-Public Use
  Company Number: JP-PFIZER INC-2013147034

PATIENT
  Sex: 0

DRUGS (2)
  1. AZULFIDINE EN [Suspect]
     Indication: RHEUMATOID ARTHRITIS
     Dosage: UNK
     Route: 048
     Dates: start: 2011, end: 20130509
  2. AZULFIDINE EN [Suspect]
     Dosage: UNK

REACTIONS (1)
  - Pneumonia [Recovered/Resolved]
